FAERS Safety Report 17351930 (Version 1)
Quarter: 2020Q1

REPORT INFORMATION
  Report Type: Report from Study
  Country: US (occurrence: US)
  Receive Date: 20200130
  Receipt Date: 20200130
  Transmission Date: 20200409
  Serious: Yes (Other)
  Sender: FDA-Public Use
  Company Number: US-JNJFOC-20200139970

PATIENT
  Sex: Female

DRUGS (1)
  1. SPRAVATO [Suspect]
     Active Substance: ESKETAMINE
     Indication: DEPRESSION

REACTIONS (6)
  - Throat irritation [Unknown]
  - Dysgeusia [Unknown]
  - Asthenia [Unknown]
  - Salivary hypersecretion [Unknown]
  - Feeling abnormal [Unknown]
  - Dizziness [Unknown]
